FAERS Safety Report 18022188 (Version 2)
Quarter: 2020Q3

REPORT INFORMATION
  Report Type: Report from Study
  Country: None (occurrence: US)
  Receive Date: 20200715
  Receipt Date: 20200825
  Transmission Date: 20201103
  Serious: Yes (Other)
  Sender: FDA-Public Use
  Company Number: US-ABBVIE-20K-163-3397702-00

PATIENT
  Age: 46 Year
  Sex: Female
  Weight: 95.34 kg

DRUGS (4)
  1. TYLENOL [Concomitant]
     Active Substance: ACETAMINOPHEN
     Indication: PRODUCT USED FOR UNKNOWN INDICATION
  2. IBUPROFEN. [Concomitant]
     Active Substance: IBUPROFEN
     Indication: ANTICOAGULANT THERAPY
  3. OXYCODONE [Concomitant]
     Active Substance: OXYCODONE
     Indication: PRODUCT USED FOR UNKNOWN INDICATION
  4. HUMIRA [Suspect]
     Active Substance: ADALIMUMAB
     Indication: CROHN^S DISEASE
     Dosage: CITRATE FREE
     Route: 058

REACTIONS (20)
  - Fall [Recovering/Resolving]
  - Back pain [Recovering/Resolving]
  - Faeces discoloured [Unknown]
  - Abdominal pain upper [Unknown]
  - Migraine [Recovered/Resolved]
  - Diarrhoea [Unknown]
  - Large intestine polyp [Unknown]
  - Shoulder operation [Recovering/Resolving]
  - Injury [Recovering/Resolving]
  - Frequent bowel movements [Unknown]
  - Gastrointestinal tract irritation [Recovered/Resolved]
  - Joint dislocation [Recovering/Resolving]
  - Abnormal faeces [Unknown]
  - Migraine [Recovered/Resolved]
  - Food allergy [Not Recovered/Not Resolved]
  - Shoulder operation [Recovered/Resolved]
  - Weight increased [Unknown]
  - Accident [Recovering/Resolving]
  - Pelvic deformity [Recovering/Resolving]
  - Abdominal discomfort [Unknown]

NARRATIVE: CASE EVENT DATE: 202001
